FAERS Safety Report 5367054-X (Version None)
Quarter: 2007Q2

REPORT INFORMATION
  Report Type: 
  Country: None (occurrence: None)
  Receive Date: 20070622
  Receipt Date: 20070618
  Transmission Date: 20071010
  Serious: Yes (Other)
  Sender: FDA-Public Use
  Company Number: B0471383A

PATIENT
  Age: 78 Year
  Sex: Male
  Weight: 51 kg

DRUGS (10)
  1. PAXIL [Suspect]
     Indication: DEPRESSION
     Route: 048
     Dates: start: 20060801, end: 20070501
  2. DEPAS [Concomitant]
     Indication: INSOMNIA
     Dosage: .5MG PER DAY
     Route: 048
     Dates: start: 20060926, end: 20070529
  3. DOGMATYL [Concomitant]
     Indication: NAUSEA
     Dosage: 150MG PER DAY
     Route: 048
     Dates: start: 20060418
  4. PARIET [Concomitant]
     Dosage: 20MG PER DAY
     Route: 048
     Dates: start: 20060428, end: 20060522
  5. DOGMATYL [Concomitant]
     Indication: STOMACH DISCOMFORT
     Dosage: 150MG PER DAY
     Route: 048
     Dates: start: 20060926, end: 20070305
  6. OMEPRAL [Concomitant]
     Dosage: 40MG PER DAY
     Route: 048
     Dates: start: 20060523, end: 20060814
  7. CLARITHROMYCIN [Concomitant]
     Dosage: 800MG PER DAY
     Route: 048
     Dates: start: 20060523, end: 20060529
  8. AMOXICILLIN TRIHYDRATE [Concomitant]
     Dosage: 1500MG PER DAY
     Route: 048
     Dates: start: 20060523, end: 20060814
  9. MUCOSTA [Concomitant]
     Dosage: 300MG PER DAY
     Route: 048
     Dates: start: 20060530, end: 20060925
  10. FLAGYL [Concomitant]
     Dosage: 1000MG PER DAY
     Route: 048
     Dates: start: 20060808, end: 20060814

REACTIONS (2)
  - CONJUNCTIVAL HAEMORRHAGE [None]
  - THROMBOCYTOPENIA [None]
